FAERS Safety Report 9230342 (Version 2)
Quarter: 2013Q2

REPORT INFORMATION
  Report Type: Spontaneous
  Country: GB (occurrence: GB)
  Receive Date: 20130415
  Receipt Date: 20130516
  Transmission Date: 20140414
  Serious: Yes (Death, Other)
  Sender: FDA-Public Use
  Company Number: PHFR2013GB002177

PATIENT
  Age: 65 Year
  Sex: Female

DRUGS (1)
  1. CLOZARIL [Suspect]
     Indication: SCHIZOPHRENIA
     Dosage: 200 MG, UNK
     Route: 048
     Dates: start: 1991

REACTIONS (6)
  - Death [Fatal]
  - Cardiac arrest [Unknown]
  - Intestinal obstruction [Unknown]
  - Constipation [Unknown]
  - White blood cell count increased [Unknown]
  - Neutrophil count increased [Unknown]
